FAERS Safety Report 20701737 (Version 1)
Quarter: 2022Q2

REPORT INFORMATION
  Report Type: Spontaneous
  Country: US (occurrence: None)
  Receive Date: 20220411
  Receipt Date: 20220411
  Transmission Date: 20220721
  Serious: Yes (Other)
  Sender: FDA-Public Use
  Company Number: None

PATIENT
  Age: 45 Year
  Sex: Male

DRUGS (1)
  1. AUSTEDO [Suspect]
     Active Substance: DEUTETRABENAZINE

REACTIONS (9)
  - Hyperhidrosis [None]
  - Musculoskeletal stiffness [None]
  - Restlessness [None]
  - Hyperventilation [None]
  - Blood pressure decreased [None]
  - Therapy change [None]
  - Therapy change [None]
  - Staring [None]
  - Feeling cold [None]

NARRATIVE: CASE EVENT DATE: 20220402
